FAERS Safety Report 14868405 (Version 2)
Quarter: 2018Q4

REPORT INFORMATION
  Report Type: Spontaneous
  Country: US (occurrence: US)
  Receive Date: 20180509
  Receipt Date: 20181128
  Transmission Date: 20190204
  Serious: Yes (Hospitalization)
  Sender: FDA-Public Use
  Company Number: US-VELOXIS PHARMACEUTICALS-2047439

PATIENT
  Age: 23 Year
  Sex: Female

DRUGS (4)
  1. TACROLIMUS. [Suspect]
     Active Substance: TACROLIMUS
     Indication: INTESTINAL TRANSPLANT
     Dosage: 4 MG, BID
     Route: 065
  2. PREDNISONE. [Suspect]
     Active Substance: PREDNISONE
     Indication: INTESTINAL TRANSPLANT
     Dosage: 5 MG, QD
     Route: 065
  3. CHOP [Concomitant]
     Active Substance: CYCLOPHOSPHAMIDE\DOXORUBICIN\PREDNISONE\VINCRISTINE
     Indication: PRODUCT USED FOR UNKNOWN INDICATION
  4. MYCOPHENOLATE MOFETIL. [Suspect]
     Active Substance: MYCOPHENOLATE MOFETIL
     Indication: INTESTINAL TRANSPLANT
     Dosage: 2000 MG, QD
     Route: 065

REACTIONS (6)
  - Diffuse large B-cell lymphoma [Unknown]
  - Febrile neutropenia [Unknown]
  - Post transplant lymphoproliferative disorder [Unknown]
  - Intentional product use issue [Unknown]
  - Septic shock [Unknown]
  - Malignant ascites [Unknown]
